FAERS Safety Report 11186148 (Version 1)
Quarter: 2015Q2

REPORT INFORMATION
  Report Type: Spontaneous
  Country: US (occurrence: US)
  Receive Date: 20150612
  Receipt Date: 20150612
  Transmission Date: 20150821
  Serious: No
  Sender: FDA-Public Use
  Company Number: US-009507513-1506USA006763

PATIENT
  Age: 18 Year
  Sex: Female
  Weight: 81.63 kg

DRUGS (1)
  1. NEXPLANON [Suspect]
     Active Substance: ETONOGESTREL
     Indication: CONTRACEPTION
     Dosage: DOSE/FREQUENCY: EVERY 3 YEARS, THERAPY ROUTE: LEFT
     Route: 059
     Dates: start: 201503

REACTIONS (1)
  - Menstrual disorder [Not Recovered/Not Resolved]

NARRATIVE: CASE EVENT DATE: 201503
